FAERS Safety Report 25105872 (Version 1)
Quarter: 2025Q1

REPORT INFORMATION
  Report Type: Spontaneous
  Country: US (occurrence: US)
  Receive Date: 20250321
  Receipt Date: 20250321
  Transmission Date: 20250409
  Serious: No
  Sender: CSL BEHRING
  Company Number: US-BEH-2025199474

PATIENT
  Sex: Female

DRUGS (1)
  1. HIZENTRA [Suspect]
     Active Substance: HUMAN IMMUNOGLOBULIN G
     Indication: Hypogammaglobulinaemia
     Dosage: 6 G, QW(STRENGTH: 0.2 GM/ML)
     Route: 058
     Dates: start: 202309

REACTIONS (6)
  - Vocal cord dysfunction [Unknown]
  - Infection [Unknown]
  - Headache [Unknown]
  - Illness [Unknown]
  - Vocal cord paresis [Unknown]
  - Condition aggravated [Unknown]
